FAERS Safety Report 5419203-2 (Version None)
Quarter: 2007Q3

REPORT INFORMATION
  Report Type: 
  Country: None (occurrence: None)
  Receive Date: 20070820
  Receipt Date: 20070813
  Transmission Date: 20080115
  Serious: Yes (Other)
  Sender: FDA-Public Use
  Company Number: ES-ROXANE LABORATORIES, INC-2007-BP-19037RO

PATIENT
  Age: 50 Year
  Sex: Female

DRUGS (8)
  1. ZONISAMIDE [Suspect]
     Indication: MIGRAINE PROPHYLAXIS
     Route: 048
  2. ZONISAMIDE [Suspect]
  3. PROPRANOLOL [Suspect]
     Indication: MIGRAINE PROPHYLAXIS
  4. FLUNARIZINE [Suspect]
     Indication: MIGRAINE PROPHYLAXIS
  5. TOPIRAMATE [Suspect]
     Indication: MIGRAINE PROPHYLAXIS
  6. VALPROIC ACID [Suspect]
     Indication: MIGRAINE PROPHYLAXIS
  7. TRYPTIZOL [Suspect]
     Indication: MIGRAINE PROPHYLAXIS
  8. MAGNESIUM SULFATE [Suspect]
     Indication: MIGRAINE PROPHYLAXIS
     Route: 048

REACTIONS (3)
  - INSOMNIA [None]
  - NO THERAPEUTIC RESPONSE [None]
  - RESTLESS LEGS SYNDROME [None]
